FAERS Safety Report 17950784 (Version 1)
Quarter: 2020Q2

REPORT INFORMATION
  Report Type: Spontaneous
  Country: CA (occurrence: CA)
  Receive Date: 20200626
  Receipt Date: 20200626
  Transmission Date: 20200714
  Serious: Yes (Hospitalization)
  Sender: FDA-Public Use
  Company Number: CA-TEVA-2020-CA-1793943

PATIENT
  Age: 82 Year
  Sex: Female

DRUGS (22)
  1. INSULIN [Concomitant]
     Active Substance: INSULIN NOS
     Route: 065
  2. VARENICLINE TARTRATE [Concomitant]
     Active Substance: VARENICLINE TARTRATE
     Dosage: 1 MILLIGRAM DAILY;
     Route: 048
  3. IMODIUM [Concomitant]
     Active Substance: LOPERAMIDE HYDROCHLORIDE
     Route: 048
  4. LANTUS [Concomitant]
     Active Substance: INSULIN GLARGINE
     Route: 058
  5. NOVORAPID [Concomitant]
     Active Substance: INSULIN ASPART
     Route: 065
  6. PROPOLIS [Concomitant]
     Active Substance: PROPOLIS WAX
     Route: 048
  7. CLONAZEPAM. [Suspect]
     Active Substance: CLONAZEPAM
     Indication: PRODUCT USED FOR UNKNOWN INDICATION
     Route: 048
  8. PANTOPRAZOLE [Suspect]
     Active Substance: PANTOPRAZOLE
     Indication: PRODUCT USED FOR UNKNOWN INDICATION
     Dosage: 80 MILLIGRAM DAILY;
     Route: 048
  9. CANNABIDIOL [Concomitant]
     Active Substance: CANNABIDIOL
     Route: 048
  10. GABAPENTIN. [Concomitant]
     Active Substance: GABAPENTIN
     Dosage: 200 MILLIGRAM DAILY;
     Route: 048
  11. SANDOSTATIN [Suspect]
     Active Substance: OCTREOTIDE ACETATE
     Indication: NEUROENDOCRINE TUMOUR
     Route: 048
  12. SANDOSTATIN [Suspect]
     Active Substance: OCTREOTIDE ACETATE
     Indication: CARCINOID TUMOUR
     Route: 065
  13. ERGOCALCIFEROL. [Suspect]
     Active Substance: ERGOCALCIFEROL
     Indication: PRODUCT USED FOR UNKNOWN INDICATION
     Route: 048
  14. SERTRALINE HYDROCHLORIDE. [Concomitant]
     Active Substance: SERTRALINE HYDROCHLORIDE
     Dosage: 100 MILLIGRAM DAILY;
     Route: 048
  15. SNS-ASA EC [Concomitant]
     Dosage: 81 MILLIGRAM DAILY;
     Route: 065
  16. ATORVASTATIN CALCIUM. [Suspect]
     Active Substance: ATORVASTATIN CALCIUM
     Indication: PRODUCT USED FOR UNKNOWN INDICATION
     Dosage: 20 MILLIGRAM DAILY;
     Route: 048
  17. METFORMIN [Suspect]
     Active Substance: METFORMIN HYDROCHLORIDE
     Indication: PRODUCT USED FOR UNKNOWN INDICATION
     Dosage: 2000 MILLIGRAM DAILY;
     Route: 048
  18. PALAFER [Concomitant]
     Active Substance: FERROUS FUMARATE
     Dosage: 300 MILLIGRAM DAILY;
     Route: 048
  19. TRAZODONE [Concomitant]
     Active Substance: TRAZODONE HYDROCHLORIDE
     Dosage: 100 MILLIGRAM DAILY;
     Route: 048
  20. VERAPAMIL [Concomitant]
     Active Substance: VERAPAMIL HYDROCHLORIDE
     Dosage: 240 MILLIGRAM DAILY;
     Route: 048
  21. GRAPE SEED EXTRACT[VITIS VINIFERA SEED] [Concomitant]
     Route: 048
  22. HYDROCHLOROTHIAZIDE. [Concomitant]
     Active Substance: HYDROCHLOROTHIAZIDE
     Dosage: 12.5 MILLIGRAM DAILY;
     Route: 048

REACTIONS (16)
  - Bronchitis [Unknown]
  - Pneumonia [Unknown]
  - Blood pressure systolic increased [Unknown]
  - Wheezing [Unknown]
  - Dizziness [Unknown]
  - Fall [Unknown]
  - Fatigue [Unknown]
  - Inappropriate schedule of product administration [Unknown]
  - Large intestine polyp [Unknown]
  - Blood pressure diastolic decreased [Unknown]
  - Diarrhoea [Unknown]
  - Cerebrovascular accident [Unknown]
  - Hip fracture [Unknown]
  - Cough [Unknown]
  - Body temperature decreased [Unknown]
  - Productive cough [Unknown]
